FAERS Safety Report 6308067-0 (Version None)
Quarter: 2009Q3

REPORT INFORMATION
  Report Type: 
  Country: None (occurrence: None)
  Receive Date: 20090813
  Receipt Date: 20090802
  Transmission Date: 20100115
  Serious: Yes (Hospitalization)
  Sender: FDA-Public Use
  Company Number: B0588059A

PATIENT
  Sex: Female

DRUGS (6)
  1. LAMICTAL [Suspect]
     Indication: BIPOLAR DISORDER
     Route: 065
     Dates: start: 20080301, end: 20080420
  2. CIPRALEX [Suspect]
     Indication: DEPRESSION
     Dosage: 10MG PER DAY
     Route: 065
     Dates: end: 20080416
  3. BUSPAR [Suspect]
     Indication: DEPRESSION
     Dosage: 40MG PER DAY
     Route: 065
  4. RITALIN [Suspect]
     Indication: ATTENTION DEFICIT/HYPERACTIVITY DISORDER
     Dosage: 60MG PER DAY
     Route: 065
     Dates: start: 20050301, end: 20080313
  5. ZYPREXA [Suspect]
     Indication: MANIA
     Dosage: 15MG PER DAY
     Route: 065
     Dates: end: 20080412
  6. TRUXAL [Suspect]
     Indication: AGITATION
     Dosage: 30MG PER DAY
     Route: 065
     Dates: end: 20080416

REACTIONS (3)
  - NEUROLEPTIC MALIGNANT SYNDROME [None]
  - PRURITUS [None]
  - RASH MACULO-PAPULAR [None]
